FAERS Safety Report 7570594-6 (Version None)
Quarter: 2011Q2

REPORT INFORMATION
  Report Type: 
  Country: None (occurrence: None)
  Receive Date: 20110624
  Receipt Date: 20110411
  Transmission Date: 20111010
  Serious: No
  Sender: FDA-Public Use
  Company Number: US-ALLERGAN-1105039US

PATIENT
  Age: 70 Year
  Sex: Female

DRUGS (2)
  1. BLINK                              /00582501/ [Concomitant]
     Dosage: UNK
  2. LATISSE [Suspect]
     Indication: GROWTH OF EYELASHES
     Dosage: 1 GTT, UNK
     Dates: start: 20090101

REACTIONS (1)
  - ERYTHEMA OF EYELID [None]
